FAERS Safety Report 9293838 (Version 2)
Quarter: 2014Q3

REPORT INFORMATION
  Report Type: Spontaneous
  Country: GB (occurrence: GB)
  Receive Date: 20130516
  Receipt Date: 20140828
  Transmission Date: 20150326
  Serious: Yes (Other)
  Sender: FDA-Public Use
  Company Number: PHHY2012GB074515

PATIENT
  Age: 52 Year
  Sex: Female

DRUGS (8)
  1. CLEXANE [Concomitant]
     Active Substance: ENOXAPARIN SODIUM
     Route: 058
     Dates: start: 201103
  2. CHLORHEXIDINE [Concomitant]
     Active Substance: CHLORHEXIDINE
     Route: 048
  3. BISOPROLOL [Concomitant]
     Active Substance: BISOPROLOL
     Dosage: 5 MG
     Dates: start: 20120808
  4. TERBINAFINE [Concomitant]
     Active Substance: TERBINAFINE
     Indication: NAIL DISORDER
     Route: 061
  5. AMISULPRIDE [Suspect]
     Active Substance: AMISULPRIDE
     Indication: SCHIZOPHRENIA, PARANOID TYPE
     Dosage: UNK UKN, UNK
     Dates: start: 201106, end: 201109
  6. FUROSEMIDE. [Suspect]
     Active Substance: FUROSEMIDE
     Indication: OEDEMA PERIPHERAL
     Dates: start: 2011
  7. BISOPROLOL [Concomitant]
     Active Substance: BISOPROLOL
     Indication: SINUS TACHYCARDIA
     Dosage: 1.25 MG, QD
     Dates: start: 201110
  8. ZAPONEX [Suspect]
     Active Substance: CLOZAPINE
     Indication: SCHIZOPHRENIA, PARANOID TYPE
     Dosage: UNK UKN, UNK
     Route: 048
     Dates: start: 20110921

REACTIONS (12)
  - Iatrogenic injury [Not Recovered/Not Resolved]
  - Choking [Unknown]
  - Hypoacusis [Not Recovered/Not Resolved]
  - Speech disorder [Recovered/Resolved]
  - Oedema peripheral [Unknown]
  - Wrong drug administered [Not Recovered/Not Resolved]
  - Vaginal haemorrhage [Unknown]
  - Vomiting [Unknown]
  - Abscess limb [Unknown]
  - Glucose tolerance impaired [Unknown]
  - Right atrial dilatation [Unknown]
  - Sinus tachycardia [Unknown]

NARRATIVE: CASE EVENT DATE: 201107
